FAERS Safety Report 6159494-6 (Version None)
Quarter: 2009Q2

REPORT INFORMATION
  Report Type: 
  Country: None (occurrence: None)
  Receive Date: 20090420
  Receipt Date: 20090409
  Transmission Date: 20091009
  Serious: Yes (Hospitalization, Other)
  Sender: FDA-Public Use
  Company Number: US-RANBAXY-2009US-23333

PATIENT

DRUGS (1)
  1. CIPROFLOXACIN [Suspect]
     Indication: BACTERIAL INFECTION
     Dosage: 500 MG, UNK
     Route: 048
     Dates: start: 20090301

REACTIONS (6)
  - CHEST PAIN [None]
  - DIARRHOEA [None]
  - DYSPNOEA [None]
  - GASTROINTESTINAL DISORDER [None]
  - PALPITATIONS [None]
  - SKIN BURNING SENSATION [None]
